FAERS Safety Report 21813952 (Version 1)
Quarter: 2023Q1

REPORT INFORMATION
  Report Type: Report from Study
  Country: US (occurrence: US)
  Receive Date: 20230104
  Receipt Date: 20230104
  Transmission Date: 20230418
  Serious: No
  Sender: FDA-Public Use
  Company Number: US-ABBVIE-4220157

PATIENT
  Sex: Male

DRUGS (1)
  1. SKYRIZI [Suspect]
     Active Substance: RISANKIZUMAB-RZAA
     Indication: Psoriasis
     Dosage: AT WEEK 0 AND 4 THEN EVERY 12 WEEKS
     Route: 058
     Dates: start: 20221109

REACTIONS (2)
  - Skin disorder [Unknown]
  - COVID-19 [Recovered/Resolved]
